FAERS Safety Report 6690740-6 (Version None)
Quarter: 2010Q2

REPORT INFORMATION
  Report Type: 
  Country: None (occurrence: None)
  Receive Date: 20100421
  Receipt Date: 20100331
  Transmission Date: 20101027
  Serious: No
  Sender: FDA-Public Use
  Company Number: US-BAYER-201013781NA

PATIENT
  Age: 38 Year
  Sex: Female
  Weight: 57 kg

DRUGS (5)
  1. MAGNEVIST [Suspect]
     Indication: NUCLEAR MAGNETIC RESONANCE IMAGING ABDOMINAL
     Dosage: TOTAL DAILY DOSE: 12 ML  UNIT DOSE: 15 ML
     Route: 042
     Dates: start: 20100202, end: 20100202
  2. THYROID TAB [Concomitant]
  3. ASPIRIN [Concomitant]
  4. FAMVIR [Concomitant]
  5. PENICILLIN [Concomitant]
     Route: 042

REACTIONS (2)
  - OROPHARYNGEAL PAIN [None]
  - THROAT IRRITATION [None]
